FAERS Safety Report 5927651-7 (Version None)
Quarter: 2008Q4

REPORT INFORMATION
  Report Type: 
  Country: None (occurrence: None)
  Receive Date: 20081023
  Receipt Date: 20081016
  Transmission Date: 20090506
  Serious: Yes (Life-Threatening, Hospitalization)
  Sender: FDA-Public Use
  Company Number: US-BAYER-200828099GPV

PATIENT
  Age: 22 Year
  Sex: Male

DRUGS (4)
  1. CAMPATH [Suspect]
     Indication: MULTIPLE SCLEROSIS
     Route: 042
     Dates: start: 20081006, end: 20081006
  2. LORATADINE [Concomitant]
     Route: 065
     Dates: start: 20081005, end: 20081006
  3. RANITIDINE [Concomitant]
     Route: 065
     Dates: start: 20081005, end: 20081006
  4. METHYLPREDNISOLONE 16MG TAB [Concomitant]
     Route: 065
     Dates: start: 20081006, end: 20081006

REACTIONS (4)
  - DRUG ADMINISTRATION ERROR [None]
  - HEADACHE [None]
  - HYPOTENSION [None]
  - URTICARIA [None]
